FAERS Safety Report 7554463-3 (Version None)
Quarter: 2011Q2

REPORT INFORMATION
  Report Type: 
  Country: None (occurrence: None)
  Receive Date: 20110617
  Receipt Date: 20110608
  Transmission Date: 20111010
  Serious: Yes (Hospitalization)
  Sender: FDA-Public Use
  Company Number: A0929336A

PATIENT
  Sex: Female

DRUGS (3)
  1. CONCURRENT MEDICATIONS [Concomitant]
  2. ADVAIR DISKUS 100/50 [Suspect]
     Route: 055
     Dates: start: 19960101
  3. INHALER [Concomitant]

REACTIONS (3)
  - CELLULITIS [None]
  - PNEUMONIA [None]
  - BRONCHITIS [None]
